FAERS Safety Report 7216200-1 (Version None)
Quarter: 2011Q1

REPORT INFORMATION
  Report Type: 
  Country: None (occurrence: None)
  Receive Date: 20110107
  Receipt Date: 20101228
  Transmission Date: 20110831
  Serious: Yes (Hospitalization, Other)
  Sender: FDA-Public Use
  Company Number: PHHY2010JP68721

PATIENT
  Sex: Male

DRUGS (6)
  1. INTERFERON ALFA [Concomitant]
     Indication: METASTATIC RENAL CELL CARCINOMA
     Dosage: 5000000 IU
     Dates: start: 20070820, end: 20090622
  2. SORAFENIB TOSILATE [Concomitant]
     Indication: METASTATIC RENAL CELL CARCINOMA
     Dosage: UNK
     Route: 048
     Dates: start: 20090623, end: 20100216
  3. SUNITINIB MALATE [Concomitant]
     Indication: METASTATIC RENAL CELL CARCINOMA
     Dosage: UNK
     Route: 048
     Dates: start: 20100324, end: 20100726
  4. TECELEUKIN [Concomitant]
     Indication: METASTATIC RENAL CELL CARCINOMA
     Dosage: UNK
     Dates: start: 20070820, end: 20090622
  5. AFINITOR [Suspect]
     Indication: METASTATIC RENAL CELL CARCINOMA
     Dosage: 10 MG, DAILY
     Route: 048
     Dates: start: 20100727, end: 20100820
  6. ZOMETA [Concomitant]
     Indication: METASTATIC RENAL CELL CARCINOMA
     Dosage: UNK
     Route: 041
     Dates: start: 20100803

REACTIONS (9)
  - DYSPNOEA [None]
  - PLEURAL EFFUSION [None]
  - BACTERIAL TEST POSITIVE [None]
  - INTERSTITIAL LUNG DISEASE [None]
  - PYREXIA [None]
  - COUGH [None]
  - CARDIAC FAILURE [None]
  - CHEST PAIN [None]
  - NEOPLASM MALIGNANT [None]
